FAERS Safety Report 9290612 (Version 1)
Quarter: 2013Q2

REPORT INFORMATION
  Report Type: Spontaneous
  Country: TR (occurrence: TR)
  Receive Date: 20130515
  Receipt Date: 20130515
  Transmission Date: 20140414
  Serious: Yes (Other)
  Sender: FDA-Public Use
  Company Number: TR-PFIZER INC-2013145290

PATIENT
  Sex: Male
  Weight: 1.5 kg

DRUGS (1)
  1. DEXAMETHASONE SODIUM PHOSPHATE [Suspect]
     Indication: UPPER AIRWAY OBSTRUCTION
     Dosage: 0.5 MG/KG, SINGLE
     Route: 042

REACTIONS (1)
  - Hypertrophic cardiomyopathy [Recovered/Resolved]
